FAERS Safety Report 18072453 (Version 1)
Quarter: 2020Q3

REPORT INFORMATION
  Report Type: Spontaneous
  Country: US (occurrence: US)
  Receive Date: 20200725
  Receipt Date: 20200725
  Transmission Date: 20201103
  Serious: No
  Sender: FDA-Public Use
  Company Number: None

PATIENT
  Sex: Female

DRUGS (1)
  1. OTEZLA [Suspect]
     Active Substance: APREMILAST
     Indication: PSORIATIC ARTHROPATHY
     Dates: start: 20200508

REACTIONS (6)
  - Diarrhoea [None]
  - Nausea [None]
  - Headache [None]
  - Migraine [None]
  - Impaired work ability [None]
  - Therapy non-responder [None]
